FAERS Safety Report 8928933 (Version 1)
Quarter: 2012Q4

REPORT INFORMATION
  Report Type: 
  Country: NL (occurrence: NL)
  Receive Date: 20121128
  Receipt Date: 20121128
  Transmission Date: 20130627
  Serious: Yes (Other)
  Sender: FDA-Public Use
  Company Number: NL-AMGEN-NLDSP2012075964

PATIENT
  Age: 57 Year
  Sex: Male

DRUGS (12)
  1. ENBREL [Suspect]
     Indication: PSORIATIC ARTHROPATHY
     Dosage: 50 mg, 2x/week
     Dates: start: 20090626
  2. OMEPRAZOLE [Concomitant]
     Dosage: UNK
  3. DOXYCINE [Concomitant]
     Dosage: UNK
  4. COAPROVEL [Concomitant]
     Dosage: UNK
  5. MOTENS [Concomitant]
     Dosage: UNK
  6. INSPRA                             /01613601/ [Concomitant]
     Dosage: UNK
  7. RASILEZ [Concomitant]
     Dosage: UNK
  8. ASCAL                              /00002702/ [Concomitant]
     Dosage: UNK
  9. METOPROLOL [Concomitant]
     Dosage: UNK
  10. AVODART [Concomitant]
     Dosage: UNK
  11. OXYCONTIN [Concomitant]
     Dosage: UNK
  12. SIMVASTATIN [Concomitant]
     Dosage: UNK

REACTIONS (1)
  - Sleep apnoea syndrome [Not Recovered/Not Resolved]
